FAERS Safety Report 15452747 (Version 4)
Quarter: 2018Q4

REPORT INFORMATION
  Report Type: Report from Study
  Country: DE (occurrence: DE)
  Receive Date: 20181001
  Receipt Date: 20181218
  Transmission Date: 20190204
  Serious: Yes (Hospitalization)
  Sender: FDA-Public Use
  Company Number: PHHY2018DE108705

PATIENT
  Sex: Male
  Weight: 84 kg

DRUGS (15)
  1. COSENTYX [Suspect]
     Active Substance: SECUKINUMAB
     Dosage: 300 MG PER APPLICATION
     Route: 065
     Dates: start: 20180512
  2. COSENTYX [Suspect]
     Active Substance: SECUKINUMAB
     Dosage: 300 MG PER APPLICATION
     Route: 065
     Dates: start: 20180712
  3. LODOTRA [Concomitant]
     Active Substance: PREDNISONE
     Dosage: 5 MG, UNK
     Route: 048
     Dates: start: 20180411
  4. COSENTYX [Suspect]
     Active Substance: SECUKINUMAB
     Dosage: 150 MG PER APPLCATION
     Route: 065
     Dates: start: 20180315
  5. COSENTYX [Suspect]
     Active Substance: SECUKINUMAB
     Dosage: 150 MG PER APPLCATION
     Route: 065
     Dates: start: 20180322
  6. COSENTYX [Suspect]
     Active Substance: SECUKINUMAB
     Dosage: 150 MG PER APPLCATION
     Route: 065
     Dates: start: 20180329
  7. COSENTYX [Suspect]
     Active Substance: SECUKINUMAB
     Dosage: 300 MG PER APPLICATION
     Route: 065
     Dates: start: 20180912
  8. COSENTYX [Suspect]
     Active Substance: SECUKINUMAB
     Dosage: 300 MG PER APPLICATION
     Route: 065
     Dates: start: 20181112
  9. NAPROXEN. [Concomitant]
     Active Substance: NAPROXEN
     Indication: PSORIATIC ARTHROPATHY
     Dosage: 500 OT, UNK
     Route: 048
     Dates: start: 20180301
  10. COSENTYX [Suspect]
     Active Substance: SECUKINUMAB
     Dosage: 150 MG PER APPLCATION
     Route: 065
     Dates: start: 20180412
  11. COSENTYX [Suspect]
     Active Substance: SECUKINUMAB
     Dosage: 300 MG PER APPLICATION
     Route: 065
     Dates: start: 20081012
  12. LODOTRA [Concomitant]
     Active Substance: PREDNISONE
     Indication: PSORIATIC ARTHROPATHY
     Dosage: 2 MG, UNK
     Route: 048
     Dates: end: 201803
  13. COSENTYX [Suspect]
     Active Substance: SECUKINUMAB
     Indication: PSORIATIC ARTHROPATHY
     Dosage: 150 MG PER APPLCATION
     Route: 065
     Dates: start: 20180308
  14. COSENTYX [Suspect]
     Active Substance: SECUKINUMAB
     Dosage: 300 MG PER APPLICATION
     Route: 065
     Dates: start: 20180612
  15. COSENTYX [Suspect]
     Active Substance: SECUKINUMAB
     Dosage: 300 MG PER APPLICATION
     Route: 065
     Dates: start: 20180812

REACTIONS (2)
  - Cellulitis [Recovering/Resolving]
  - Anal abscess [Recovering/Resolving]

NARRATIVE: CASE EVENT DATE: 20180711
